FAERS Safety Report 8397577-0 (Version None)
Quarter: 2012Q2

REPORT INFORMATION
  Report Type: 
  Country: None (occurrence: None)
  Receive Date: 20120531
  Receipt Date: 20120525
  Transmission Date: 20120825
  Serious: Yes (Hospitalization)
  Sender: FDA-Public Use
  Company Number: JP-JNJFOC-20120519992

PATIENT

DRUGS (6)
  1. GOLIMUMAB [Suspect]
     Indication: PRODUCT USED FOR UNKNOWN INDICATION
     Route: 058
     Dates: start: 20120406
  2. URSO 250 [Concomitant]
     Route: 048
  3. EVISTA [Concomitant]
     Route: 048
  4. GOLIMUMAB [Suspect]
     Route: 058
     Dates: start: 20111216
  5. AMLODIPINE [Concomitant]
     Route: 048
  6. MUCOSTA [Concomitant]
     Route: 048

REACTIONS (1)
  - DRUG ERUPTION [None]
